FAERS Safety Report 25231297 (Version 2)
Quarter: 2025Q2

REPORT INFORMATION
  Report Type: Report from Study
  Country: CL (occurrence: CL)
  Receive Date: 20250423
  Receipt Date: 20250529
  Transmission Date: 20250716
  Serious: Yes (Hospitalization, Other)
  Sender: SANDOZ
  Company Number: CL-SANDOZ-SDZ2025CL025233

PATIENT
  Sex: Female

DRUGS (1)
  1. HYRIMOZ [Suspect]
     Active Substance: ADALIMUMAB-ADAZ
     Indication: Ankylosing spondylitis
     Route: 058
     Dates: start: 20240306, end: 20250130

REACTIONS (5)
  - Obstruction [Recovering/Resolving]
  - Ileostomy closure [Unknown]
  - Peritonitis [Unknown]
  - Appendicitis [Unknown]
  - Uveitis [Unknown]
